FAERS Safety Report 11728047 (Version 3)
Quarter: 2016Q1

REPORT INFORMATION
  Report Type: Spontaneous
  Country: BR (occurrence: BR)
  Receive Date: 20151112
  Receipt Date: 20160201
  Transmission Date: 20160525
  Serious: Yes (Other)
  Sender: FDA-Public Use
  Company Number: PHHY2015BR147359

PATIENT
  Sex: Female
  Weight: 69 kg

DRUGS (1)
  1. DIOVAN [Suspect]
     Active Substance: VALSARTAN
     Indication: HYPERTENSION
     Dosage: 2 DF (SHE USED 1 TABLET PER DAY, BUT THERE WAS DAYS THAT SHE TOOK 2 TABLETS), QD
     Route: 048

REACTIONS (10)
  - Tinnitus [Not Recovered/Not Resolved]
  - Deafness [Not Recovered/Not Resolved]
  - Dizziness [Not Recovered/Not Resolved]
  - Nausea [Recovering/Resolving]
  - Drug ineffective [Unknown]
  - Head discomfort [Not Recovered/Not Resolved]
  - Labyrinthitis [Unknown]
  - Ear discomfort [Not Recovered/Not Resolved]
  - Malaise [Unknown]
  - Hypertension [Not Recovered/Not Resolved]
